FAERS Safety Report 8152086-9 (Version None)
Quarter: 2012Q1

REPORT INFORMATION
  Report Type: 
  Country: None (occurrence: None)
  Receive Date: 20120221
  Receipt Date: 20120217
  Transmission Date: 20120608
  Serious: Yes (Other)
  Sender: FDA-Public Use
  Company Number: US-PFIZER INC-2012038756

PATIENT
  Sex: Male
  Weight: 121 kg

DRUGS (10)
  1. COREG [Concomitant]
     Dosage: UNK
  2. LISINOPRIL [Concomitant]
     Dosage: UNK
  3. METFORMIN [Concomitant]
     Dosage: UNK
  4. METHOTREXATE [Concomitant]
     Dosage: UNK
  5. CLONAZEPAM [Concomitant]
     Dosage: UNK
  6. JANUVIA [Concomitant]
     Dosage: UNK
  7. SIMVASTATIN [Concomitant]
     Dosage: UNK
  8. FLONASE [Concomitant]
     Dosage: UNK
  9. TRICOR [Concomitant]
     Dosage: UNK
  10. PROTONIX [Suspect]
     Indication: GASTRITIS EROSIVE
     Dosage: 40 MG, 1X/DAY
     Route: 048
     Dates: start: 20101221

REACTIONS (3)
  - BIPOLAR I DISORDER [None]
  - RHEUMATOID ARTHRITIS [None]
  - BLOOD CHOLESTEROL INCREASED [None]
